FAERS Safety Report 8022286 (Version 4)
Quarter: 2013Q1

REPORT INFORMATION
  Report Type: Spontaneous
  Country: FR (occurrence: FR)
  Receive Date: 20110706
  Receipt Date: 20130227
  Transmission Date: 20140127
  Serious: Yes (Hospitalization, Disabling)
  Sender: FDA-Public Use
  Company Number: FR-BIOGENIDEC-2011BI023444

PATIENT
  Age: 40 Year
  Sex: Male

DRUGS (5)
  1. TYSABRI [Suspect]
     Indication: MULTIPLE SCLEROSIS
     Route: 042
     Dates: start: 201011, end: 20110525
  2. ANTIDEPRESSIVE [Concomitant]
     Indication: DEPRESSIVE SYMPTOM
     Dates: start: 201103
  3. MICARDIS [Concomitant]
  4. LANZOR [Concomitant]
  5. OMEXEL [Concomitant]

REACTIONS (1)
  - B-cell lymphoma [Recovered/Resolved]
